FAERS Safety Report 17103740 (Version 2)
Quarter: 2019Q4

REPORT INFORMATION
  Report Type: Report from Study
  Country: KR (occurrence: KR)
  Receive Date: 20191203
  Receipt Date: 20191220
  Transmission Date: 20200122
  Serious: Yes (Hospitalization)
  Sender: FDA-Public Use
  Company Number: KR-ASTRAZENECA-2019SF71402

PATIENT
  Age: 749 Month
  Sex: Male

DRUGS (9)
  1. KEPPRA [Concomitant]
     Active Substance: LEVETIRACETAM
     Indication: SEIZURE PROPHYLAXIS
     Dates: start: 20190712
  2. TARGIN PR [Concomitant]
     Indication: NON-SMALL CELL LUNG CANCER
     Dates: start: 2019
  3. MINOCIN [Concomitant]
     Active Substance: MINOCYCLINE HYDROCHLORIDE
     Indication: C-REACTIVE PROTEIN INCREASED
     Dates: start: 20190729, end: 20190902
  4. TAGRISSO [Suspect]
     Active Substance: OSIMERTINIB
     Indication: NON-SMALL CELL LUNG CANCER
     Route: 048
     Dates: start: 20190918
  5. KABALIN [Concomitant]
     Indication: NEUROPATHY PERIPHERAL
     Dates: start: 2019
  6. MOTILITONE [Concomitant]
     Active Substance: HERBALS
     Indication: DYSPEPSIA
     Dates: start: 2019
  7. DEXAMETHASONE BUKWANG [Concomitant]
     Indication: METASTASES TO CENTRAL NERVOUS SYSTEM
     Dates: start: 20170719
  8. TAGRISSO [Suspect]
     Active Substance: OSIMERTINIB
     Indication: NON-SMALL CELL LUNG CANCER
     Route: 048
     Dates: start: 20190729, end: 20190905
  9. ESOMEZOL [Concomitant]
     Indication: PROPHYLAXIS AGAINST GASTROINTESTINAL ULCER
     Dates: start: 2019

REACTIONS (2)
  - Drug-induced liver injury [Recovered/Resolved]
  - Asthenia [Unknown]

NARRATIVE: CASE EVENT DATE: 20190902
